FAERS Safety Report 17556107 (Version 1)
Quarter: 2020Q1

REPORT INFORMATION
  Report Type: Spontaneous
  Country: US (occurrence: US)
  Receive Date: 20200318
  Receipt Date: 20200318
  Transmission Date: 20200409
  Serious: No
  Sender: FDA-Public Use
  Company Number: US-THERAPEUTICSMD-2019TMD05019

PATIENT
  Sex: Female

DRUGS (2)
  1. IMVEXXY [Suspect]
     Active Substance: ESTRADIOL
     Indication: VAGINAL DISCHARGE
     Dosage: ^2 PILLS IN 2 WEEKS.^
     Route: 067
     Dates: start: 20191205
  2. IMVEXXY [Suspect]
     Active Substance: ESTRADIOL
     Indication: UTERINE ATROPHY

REACTIONS (1)
  - Laryngitis [Not Recovered/Not Resolved]

NARRATIVE: CASE EVENT DATE: 201912
